FAERS Safety Report 4898474-5 (Version None)
Quarter: 2006Q1

REPORT INFORMATION
  Report Type: 
  Country: None (occurrence: None)
  Receive Date: 20060130
  Receipt Date: 20060116
  Transmission Date: 20060701
  Serious: Yes (Other)
  Sender: FDA-Public Use
  Company Number: 2006008467

PATIENT

DRUGS (2)
  1. LYRICA [Suspect]
     Indication: PAIN
     Dosage: 1 D ORAL
     Route: 048
  2. TRAMADOL HCL [Suspect]
     Indication: PAIN
     Dosage: 200 MG (100 MG 2 IN 1 D)

REACTIONS (2)
  - MYOCLONUS [None]
  - PSYCHOTIC DISORDER [None]
